FAERS Safety Report 7798157-8 (Version None)
Quarter: 2011Q4

REPORT INFORMATION
  Report Type: 
  Country: None (occurrence: None)
  Receive Date: 20111005
  Receipt Date: 20110928
  Transmission Date: 20120403
  Serious: Yes (Hospitalization, Other)
  Sender: FDA-Public Use
  Company Number: JP-CEPHALON-2011000816

PATIENT
  Sex: Male
  Weight: 59 kg

DRUGS (7)
  1. BENDAMUSTINE HCL [Suspect]
     Route: 042
     Dates: start: 20110418, end: 20110419
  2. ALLOPURINOL [Concomitant]
     Dates: start: 20110202
  3. BENDAMUSTINE HCL [Suspect]
     Route: 042
     Dates: start: 20110523, end: 20110524
  4. BENDAMUSTINE HCL [Suspect]
     Indication: B-CELL LYMPHOMA
     Route: 042
     Dates: start: 20110120, end: 20110121
  5. ACYCLOVIR [Concomitant]
     Dates: start: 20110120
  6. DEXAMETHASONE SODIUM PHOSPHATE [Concomitant]
     Dates: start: 20110120, end: 20110526
  7. BENDAMUSTINE HCL [Suspect]
     Route: 042
     Dates: start: 20110316, end: 20110317

REACTIONS (2)
  - NEUTROPHIL COUNT DECREASED [None]
  - WHITE BLOOD CELL COUNT DECREASED [None]
